FAERS Safety Report 24219992 (Version 4)
Quarter: 2024Q4

REPORT INFORMATION
  Report Type: Spontaneous
  Country: US (occurrence: US)
  Receive Date: 20240817
  Receipt Date: 20241126
  Transmission Date: 20250114
  Serious: Yes (Other)
  Sender: UPSHER SMITH LABORATORIES
  Company Number: US-UPSHER-SMITH LABORATORIES, LLC-20240800076

PATIENT
  Sex: Male
  Weight: 11.791 kg

DRUGS (3)
  1. VIGADRONE [Suspect]
     Active Substance: VIGABATRIN
     Indication: Tuberous sclerosis complex
     Dosage: ADMINISTER 750 MG (15 ML) BY MOUTH EVERY MORNING AND ADMINISTER 1000 MG (20 ML) EVERY EVENING
     Route: 048
     Dates: start: 20230619
  2. CLOBAZAM [Concomitant]
     Active Substance: CLOBAZAM
     Indication: Product used for unknown indication
     Dosage: 3 MILLILITER, BID (2.5 MG/ML)
     Route: 065
  3. KEPPRA [Concomitant]
     Active Substance: LEVETIRACETAM
     Indication: Product used for unknown indication
     Dosage: 2 MILLILITER, BID (100 MG/ML)
     Route: 065

REACTIONS (5)
  - Brain neoplasm [Unknown]
  - Seizure [Recovered/Resolved]
  - Febrile convulsion [Recovered/Resolved]
  - SARS-CoV-2 test positive [Recovered/Resolved]
  - Product physical consistency issue [Unknown]

NARRATIVE: CASE EVENT DATE: 20240101
